FAERS Safety Report 20734203 (Version 1)
Quarter: 2022Q2

REPORT INFORMATION
  Report Type: Spontaneous
  Country: GB (occurrence: GB)
  Receive Date: 20220421
  Receipt Date: 20220421
  Transmission Date: 20220721
  Serious: Yes (Disabling)
  Sender: FDA-Public Use
  Company Number: GB-MHRA-MED-202204101159220960-FOIFF

PATIENT

DRUGS (1)
  1. VENLAFAXINE [Suspect]
     Active Substance: VENLAFAXINE HYDROCHLORIDE
     Indication: Product used for unknown indication
     Dosage: UNK (75MG ONCE A DAY, INCREASED TO 150MG DESPITE REPORTING SIDE EFFECTS)
     Route: 065

REACTIONS (1)
  - Somnolence [Not Recovered/Not Resolved]
